FAERS Safety Report 23223140 (Version 1)
Quarter: 2023Q4

REPORT INFORMATION
  Report Type: Spontaneous
  Country: None (occurrence: US)
  Receive Date: 20231123
  Receipt Date: 20231123
  Transmission Date: 20240110
  Serious: No
  Sender: FDA-Public Use
  Company Number: US-LGM Pharma Solutions, LLC-2148616

PATIENT
  Age: 52 Year
  Sex: Female

DRUGS (8)
  1. CHENODAL [Suspect]
     Active Substance: CHENODIOL
     Indication: Lipidosis
     Route: 048
     Dates: start: 20170121
  2. RILUZOLE [Concomitant]
     Active Substance: RILUZOLE
  3. VITAMIN D2 [Concomitant]
     Active Substance: ERGOCALCIFEROL
  4. SINGULAIR [Concomitant]
     Active Substance: MONTELUKAST SODIUM
  5. VENTOLIN HFA [Concomitant]
     Active Substance: ALBUTEROL SULFATE
  6. LORATADINE ALLERGY RELIEF [Concomitant]
     Active Substance: LORATADINE
  7. BACLOFEN [Concomitant]
     Active Substance: BACLOFEN
  8. PREDNISONE [Concomitant]
     Active Substance: PREDNISONE
     Route: 065

REACTIONS (2)
  - Sinus disorder [Recovered/Resolved]
  - Asthma [Recovered/Resolved]
